FAERS Safety Report 15475118 (Version 2)
Quarter: 2018Q4

REPORT INFORMATION
  Report Type: Spontaneous
  Country: DE (occurrence: DE)
  Receive Date: 20181008
  Receipt Date: 20181017
  Transmission Date: 20190205
  Serious: Yes (Other)
  Sender: FDA-Public Use
  Company Number: DE-PFIZER INC-2018398211

PATIENT
  Age: 85 Year

DRUGS (2)
  1. PREDNISON [Concomitant]
     Active Substance: PREDNISONE
     Route: 065
  2. ZOLEDRONIC ACID [Suspect]
     Active Substance: ZOLEDRONIC ACID
     Indication: OSTEOPOROSIS
     Dosage: 5 MG MILLIGRAM(S) EVERY YEAR
     Route: 042

REACTIONS (1)
  - Osteonecrosis of jaw [Unknown]
